FAERS Safety Report 9668270 (Version 1)
Quarter: 2013Q4

REPORT INFORMATION
  Report Type: Spontaneous
  Country: NO (occurrence: NO)
  Receive Date: 20131104
  Receipt Date: 20131104
  Transmission Date: 20140711
  Serious: Yes (Life-Threatening)
  Sender: FDA-Public Use
  Company Number: NO-BAXTER-2013BAX042266

PATIENT
  Age: 72 Year
  Sex: Male

DRUGS (6)
  1. KIOVIG 100 MG/ML INFUSJONSV?SKE, OPPL?SNING [Suspect]
     Indication: CHRONIC INFLAMMATORY DEMYELINATING POLYRADICULONEUROPATHY
     Route: 042
     Dates: start: 20131003, end: 20131004
  2. KIOVIG 100 MG/ML INFUSJONSV?SKE, OPPL?SNING [Suspect]
     Indication: OFF LABEL USE
  3. KIOVIG 100 MG/ML INFUSJONSV?SKE, OPPL?SNING [Suspect]
     Indication: POLYNEUROPATHY
  4. SIMVASTATIN [Suspect]
     Indication: PRODUCT USED FOR UNKNOWN INDICATION
     Route: 065
  5. LEVAXIN [Concomitant]
     Indication: PRODUCT USED FOR UNKNOWN INDICATION
     Route: 065
  6. ALBYL-E [Concomitant]
     Indication: PRODUCT USED FOR UNKNOWN INDICATION
     Route: 065

REACTIONS (2)
  - Colitis ischaemic [Recovered/Resolved with Sequelae]
  - Large intestine perforation [Recovered/Resolved with Sequelae]
